FAERS Safety Report 7539590-9 (Version None)
Quarter: 2011Q2

REPORT INFORMATION
  Report Type: 
  Country: None (occurrence: None)
  Receive Date: 20110610
  Receipt Date: 20100211
  Transmission Date: 20111010
  Serious: No
  Sender: FDA-Public Use
  Company Number: US-BAYER-201014540NA

PATIENT
  Age: 21 Year
  Sex: Female
  Weight: 72.562 kg

DRUGS (1)
  1. MIRENA [Suspect]
     Indication: CONTRACEPTION
     Dosage: 20 MCG/24HR, UNK
     Route: 015
     Dates: start: 20071023, end: 20090928

REACTIONS (1)
  - OLIGOMENORRHOEA [None]
